FAERS Safety Report 5827646-8 (Version None)
Quarter: 2008Q3

REPORT INFORMATION
  Report Type: 
  Country: None (occurrence: None)
  Receive Date: 20080728
  Receipt Date: 20080717
  Transmission Date: 20090109
  Serious: Yes (Other)
  Sender: FDA-Public Use
  Company Number: GXKR2008GB06713

PATIENT
  Age: 25 Year
  Sex: Female

DRUGS (4)
  1. CITALOPRAM HYDROBROMIDE [Suspect]
     Indication: ANXIETY
     Dosage: 40 MG
     Dates: start: 20070124, end: 20080423
  2. CITALOPRAM HYDROBROMIDE [Suspect]
     Indication: DEPRESSION
     Dosage: 40 MG
     Dates: start: 20070124, end: 20080423
  3. PROPRANOLOL (NFX) (PROPRANOLOL) UNKNOWN [Suspect]
     Indication: ANXIETY
     Dosage: 10 MG, TID
     Dates: start: 20070828
  4. DICLOFENAC SODIUM [Concomitant]

REACTIONS (3)
  - ABORTION INDUCED [None]
  - ANENCEPHALY [None]
  - DRUG EXPOSURE DURING PREGNANCY [None]
